FAERS Safety Report 8812070 (Version 3)
Quarter: 2013Q2

REPORT INFORMATION
  Report Type: Spontaneous
  Country: IE (occurrence: IE)
  Receive Date: 20120927
  Receipt Date: 20130531
  Transmission Date: 20140414
  Serious: Yes (Disabling, Other)
  Sender: FDA-Public Use
  Company Number: IE-ROCHE-1137007

PATIENT
  Age: 62 Year
  Sex: Male
  Weight: 90 kg

DRUGS (11)
  1. LUCENTIS [Suspect]
     Indication: AGE-RELATED MACULAR DEGENERATION
     Route: 050
     Dates: start: 20111127
  2. LUCENTIS [Suspect]
     Route: 050
     Dates: start: 20120104
  3. LUCENTIS [Suspect]
     Route: 050
     Dates: start: 20120515
  4. LUCENTIS [Suspect]
     Route: 050
     Dates: start: 20120713
  5. AVASTIN [Concomitant]
     Route: 065
     Dates: start: 20101112
  6. AVASTIN [Concomitant]
     Route: 065
     Dates: start: 20101221
  7. AVASTIN [Concomitant]
     Route: 065
     Dates: start: 20110201
  8. AVASTIN [Concomitant]
     Route: 065
     Dates: start: 20110304
  9. AVASTIN [Concomitant]
     Route: 065
     Dates: start: 20110503
  10. AVASTIN [Concomitant]
     Route: 065
     Dates: start: 20110604
  11. AVASTIN [Concomitant]
     Route: 065
     Dates: start: 20111018

REACTIONS (1)
  - Macular scar [Not Recovered/Not Resolved]
